FAERS Safety Report 16815186 (Version 1)
Quarter: 2019Q4

REPORT INFORMATION
  Report Type: Spontaneous
  Country: US (occurrence: US)
  Receive Date: 20190916
  Receipt Date: 20190916
  Transmission Date: 20200122
  Serious: Yes (Other)
  Sender: FDA-Public Use
  Company Number: None

PATIENT
  Age: 61 Year
  Sex: Male
  Weight: 69.75 kg

DRUGS (9)
  1. LOSARTIN [Concomitant]
     Active Substance: LOSARTAN
  2. ATORVASTATIN [Concomitant]
     Active Substance: ATORVASTATIN
  3. TESTOSTERONE CYP [Concomitant]
     Active Substance: TESTOSTERONE CYPIONATE
  4. BUSPAR [Concomitant]
     Active Substance: BUSPIRONE HYDROCHLORIDE
  5. CENTRUM [Concomitant]
     Active Substance: VITAMINS
  6. AIMOVIG [Suspect]
     Active Substance: ERENUMAB-AOOE
     Indication: BASILAR MIGRAINE
     Dosage: ?          QUANTITY:1 INJECTION(S);OTHER FREQUENCY:EVERY 30 DAYS;?
     Route: 058
  7. FISH OIL [Concomitant]
     Active Substance: FISH OIL
  8. MULTI VITAMIN [Concomitant]
     Active Substance: VITAMINS
  9. LUETIN [Concomitant]

REACTIONS (2)
  - Therapy cessation [None]
  - Hypertension [None]

NARRATIVE: CASE EVENT DATE: 20190915
